FAERS Safety Report 21849015 (Version 1)
Quarter: 2023Q1

REPORT INFORMATION
  Report Type: Spontaneous
  Country: US (occurrence: None)
  Receive Date: 20230110
  Receipt Date: 20230110
  Transmission Date: 20230418
  Serious: Yes (Hospitalization)
  Sender: FDA-Public Use
  Company Number: None

PATIENT
  Age: 68 Year
  Sex: Male

DRUGS (2)
  1. SIROLIMUS [Suspect]
     Active Substance: SIROLIMUS
     Indication: Heart transplant
     Dosage: FREQUENCY : DAILY;?
     Route: 048
     Dates: start: 20210830
  2. SIROLIMUS [Suspect]
     Active Substance: SIROLIMUS
     Dosage: FREQUENCY : DAILY;?
     Route: 048

REACTIONS (1)
  - Antibody test abnormal [None]

NARRATIVE: CASE EVENT DATE: 20221212
